FAERS Safety Report 20516343 (Version 1)
Quarter: 2022Q1

REPORT INFORMATION
  Report Type: Spontaneous
  Country: US (occurrence: US)
  Receive Date: 20220225
  Receipt Date: 20220225
  Transmission Date: 20220423
  Serious: No
  Sender: FDA-Public Use
  Company Number: US-STRIDES ARCOLAB LIMITED-2022SP000378

PATIENT
  Age: 25 Year
  Sex: Male

DRUGS (4)
  1. TRIAMCINOLONE ACETONIDE [Suspect]
     Active Substance: TRIAMCINOLONE ACETONIDE
     Indication: Chronic pigmented purpura
     Dosage: UNK, 0.1% OINTMENT TWICE DAILY FOR 6 WEEKS
     Route: 061
  2. TRIAMCINOLONE ACETONIDE [Suspect]
     Active Substance: TRIAMCINOLONE ACETONIDE
     Indication: Lichenoid keratosis
  3. TACROLIMUS [Suspect]
     Active Substance: TACROLIMUS
     Indication: Chronic pigmented purpura
     Dosage: UNK, DAILY FOR 8 WEEKS
     Route: 065
  4. TACROLIMUS [Suspect]
     Active Substance: TACROLIMUS
     Indication: Lichenoid keratosis

REACTIONS (2)
  - Drug ineffective [Unknown]
  - Off label use [Unknown]
